FAERS Safety Report 18071406 (Version 1)
Quarter: 2020Q3

REPORT INFORMATION
  Report Type: Spontaneous
  Country: US (occurrence: US)
  Receive Date: 20200724
  Receipt Date: 20200724
  Transmission Date: 20201103
  Serious: Yes (Hospitalization)
  Sender: FDA-Public Use
  Company Number: None

PATIENT
  Age: 74 Year
  Sex: Male

DRUGS (8)
  1. LORAZEPAM. [Concomitant]
     Active Substance: LORAZEPAM
  2. QUINAPRIL. [Concomitant]
     Active Substance: QUINAPRIL
  3. INLYTA [Suspect]
     Active Substance: AXITINIB
     Indication: RENAL CANCER
     Route: 048
     Dates: start: 20200411
  4. GLUTAMINE [Concomitant]
     Active Substance: GLUTAMINE
  5. MELATONIN [Concomitant]
     Active Substance: MELATONIN
  6. FINASTERIDE. [Concomitant]
     Active Substance: FINASTERIDE
  7. NIFEDICAL XL [Concomitant]
     Active Substance: NIFEDIPINE
  8. SUTENT [Concomitant]
     Active Substance: SUNITINIB MALATE

REACTIONS (1)
  - Blood sodium decreased [None]

NARRATIVE: CASE EVENT DATE: 20200722
